FAERS Safety Report 6651961-1 (Version None)
Quarter: 2010Q1

REPORT INFORMATION
  Report Type: 
  Country: None (occurrence: None)
  Receive Date: 20100325
  Receipt Date: 20100322
  Transmission Date: 20100710
  Serious: Yes (Death)
  Sender: FDA-Public Use
  Company Number: PHHY2010IT17409

PATIENT
  Age: 45 Year
  Sex: Male

DRUGS (13)
  1. CYCLOSPORINE [Suspect]
     Indication: STEM CELL TRANSPLANT
     Dosage: UNK
     Dates: start: 20060301
  2. CYCLOSPORINE [Suspect]
     Indication: PROPHYLAXIS AGAINST GRAFT VERSUS HOST DISEASE
  3. METHOTREXATE [Suspect]
     Indication: STEM CELL TRANSPLANT
     Dosage: 15 MG/M2, UNK
     Dates: start: 20060301
  4. METHOTREXATE [Suspect]
     Indication: PROPHYLAXIS AGAINST GRAFT VERSUS HOST DISEASE
     Dosage: 10 MG/M2, UNK
  5. RITUXIMAB [Concomitant]
     Indication: STEM CELL TRANSPLANT
     Dosage: 375 MG/M2, UNK
     Route: 042
     Dates: start: 20051101, end: 20060201
  6. RITUXIMAB [Concomitant]
     Dosage: 375 MG/M2, UNK
     Dates: start: 20070101, end: 20080401
  7. CISPLATIN [Concomitant]
     Indication: STEM CELL TRANSPLANT
     Dosage: UNK
     Dates: start: 20050201, end: 20060201
  8. CYTOSINE ARABINOSIDE [Concomitant]
     Indication: STEM CELL TRANSPLANT
     Dosage: UNK
     Dates: start: 20051101, end: 20060201
  9. DEXAMETHASONE [Concomitant]
     Indication: STEM CELL TRANSPLANT
     Dosage: UNK
     Dates: start: 20051101, end: 20060201
  10. CARMUSTINE [Concomitant]
     Indication: STEM CELL TRANSPLANT
     Dosage: UNK
     Dates: start: 20060301
  11. ETOPOSIDE [Concomitant]
     Indication: STEM CELL TRANSPLANT
     Dosage: UNK
     Dates: start: 20060301
  12. CYTARABINE [Concomitant]
     Indication: STEM CELL TRANSPLANT
     Dosage: UNK
     Dates: start: 20060301
  13. MELPHALAN HYDROCHLORIDE [Concomitant]
     Indication: STEM CELL TRANSPLANT

REACTIONS (6)
  - CENTRAL NERVOUS SYSTEM LESION [None]
  - DEMYELINATION [None]
  - HEMIANOPIA [None]
  - JC VIRUS INFECTION [None]
  - PROGRESSIVE MULTIFOCAL LEUKOENCEPHALOPATHY [None]
  - RESPIRATORY FAILURE [None]
